FAERS Safety Report 6972554-2 (Version None)
Quarter: 2010Q3

REPORT INFORMATION
  Report Type: 
  Country: None (occurrence: None)
  Receive Date: 20100909
  Receipt Date: 20100906
  Transmission Date: 20110219
  Serious: Yes (Death, Hospitalization)
  Sender: FDA-Public Use
  Company Number: JP-BAYER-201014095BYL

PATIENT
  Age: 61 Year
  Sex: Male
  Weight: 76 kg

DRUGS (7)
  1. NEXAVAR [Suspect]
     Indication: HEPATIC NEOPLASM MALIGNANT
     Dosage: UNIT DOSE: 200 MG
     Route: 048
     Dates: start: 20100705, end: 20100716
  2. NEXAVAR [Suspect]
     Dosage: UNIT DOSE: 200 MG
     Route: 048
     Dates: start: 20100720, end: 20100806
  3. URSO 250 [Concomitant]
     Route: 048
  4. MYSLEE [Concomitant]
     Route: 048
  5. LIVACT [Concomitant]
     Dosage: SINCE BEFORE THE ADMINISTRATION OF NEXAVAR
     Route: 048
  6. LOXOPROFEN [Concomitant]
     Dosage: SINCE BEFORE THE ADMINISTRATION OF NEXAVAR
     Route: 048
  7. PROTECADIN [Concomitant]
     Dosage: SINCE BEFORE THE ADMINISTRATION OF NEXAVAR
     Route: 048

REACTIONS (4)
  - ASCITES [None]
  - HEPATIC NEOPLASM MALIGNANT [None]
  - PALMAR-PLANTAR ERYTHRODYSAESTHESIA SYNDROME [None]
  - SCROTAL ULCER [None]
